FAERS Safety Report 21792468 (Version 1)
Quarter: 2022Q4

REPORT INFORMATION
  Report Type: Report from Study
  Country: US (occurrence: US)
  Receive Date: 20221229
  Receipt Date: 20221229
  Transmission Date: 20230113
  Serious: No
  Sender: FDA-Public Use
  Company Number: US-ABBVIE-4206160

PATIENT
  Sex: Female

DRUGS (2)
  1. SKYRIZI [Suspect]
     Active Substance: RISANKIZUMAB-RZAA
     Indication: Post inflammatory pigmentation change
     Dosage: WEEK 4, THEN EVERY 12 WEEKS, STRENGTH: 150 MG?FIRST ADMIN DATE: 2022?LAST ADMIN DATE: 2022
     Route: 058
  2. SKYRIZI [Suspect]
     Active Substance: RISANKIZUMAB-RZAA
     Indication: Psoriasis
     Dosage: WEEK 0, STRENGTH: 150 MG
     Route: 058
     Dates: start: 202203, end: 202203

REACTIONS (2)
  - Rash [Not Recovered/Not Resolved]
  - Drug ineffective [Unknown]
